FAERS Safety Report 5457119-6 (Version None)
Quarter: 2007Q3

REPORT INFORMATION
  Report Type: 
  Country: None (occurrence: None)
  Receive Date: 20070918
  Receipt Date: 20070103
  Transmission Date: 20080115
  Serious: Yes (Other)
  Sender: FDA-Public Use
  Company Number: US-ASTRAZENECA-2007UW00196

PATIENT
  Age: 48 Year
  Sex: Female

DRUGS (3)
  1. SEROQUEL [Suspect]
     Route: 048
     Dates: start: 20020101
  2. SYNTHROID [Concomitant]
  3. PERCOCET [Concomitant]

REACTIONS (1)
  - CATARACT [None]
